FAERS Safety Report 11527664 (Version 1)
Quarter: 2015Q3

REPORT INFORMATION
  Report Type: Spontaneous
  Country: US (occurrence: US)
  Receive Date: 20150903
  Receipt Date: 20150903
  Transmission Date: 20151125
  Serious: No
  Sender: FDA-Public Use
  Company Number: US-ELI_LILLY_AND_COMPANY-US200905001037

PATIENT
  Sex: Female

DRUGS (1)
  1. HUMALOG [Suspect]
     Active Substance: INSULIN LISPRO
     Indication: DIABETES MELLITUS
     Dosage: 42 U, DAILY (1/D)
     Dates: start: 2008

REACTIONS (3)
  - Anxiety [Unknown]
  - Injection site discolouration [Recovering/Resolving]
  - Injection site pain [Unknown]
